FAERS Safety Report 6870515-5 (Version None)
Quarter: 2010Q3

REPORT INFORMATION
  Report Type: 
  Country: None (occurrence: None)
  Receive Date: 20100723
  Receipt Date: 20100714
  Transmission Date: 20110219
  Serious: No
  Sender: FDA-Public Use
  Company Number: US-BIOGENIDEC-2010BI024258

PATIENT
  Sex: Female

DRUGS (2)
  1. AVONEX [Suspect]
     Indication: MULTIPLE SCLEROSIS
     Route: 030
     Dates: start: 20000126
  2. AVONEX [Suspect]
     Route: 030
     Dates: end: 20050901

REACTIONS (3)
  - INFLUENZA LIKE ILLNESS [None]
  - MICTURITION URGENCY [None]
  - SCAR [None]
